FAERS Safety Report 14256528 (Version 1)
Quarter: 2017Q4

REPORT INFORMATION
  Report Type: Spontaneous
  Country: CH (occurrence: CH)
  Receive Date: 20171206
  Receipt Date: 20171206
  Transmission Date: 20180321
  Serious: Yes (Hospitalization)
  Sender: FDA-Public Use
  Company Number: PHHY2017CH172633

PATIENT
  Age: 12 Year
  Sex: Female
  Weight: 28 kg

DRUGS (58)
  1. CYTARABINE. [Interacting]
     Active Substance: CYTARABINE
     Dosage: 80 MG, UNK
     Route: 042
     Dates: start: 20171019, end: 20171022
  2. LANVIS [Suspect]
     Active Substance: THIOGUANINE ANHYDROUS
     Dosage: 60 MG, QD
     Route: 048
     Dates: start: 20171009, end: 20171023
  3. ADRIBLASTIN [Suspect]
     Active Substance: DOXORUBICIN HYDROCHLORIDE
     Dosage: 32 MG, UNK
     Route: 042
     Dates: start: 20170908
  4. UROMITEXAN [Concomitant]
     Active Substance: MESNA
     Indication: PRODUCT USED FOR UNKNOWN INDICATION
     Route: 065
     Dates: start: 201703
  5. METHOTREXATE (METHOTREXATE SODIUM) [Interacting]
     Active Substance: METHOTREXATE SODIUM
     Dosage: 12 MG, QD (DAY 38 45)
     Route: 037
     Dates: start: 20171012, end: 20171020
  6. CYTARABINE. [Interacting]
     Active Substance: CYTARABINE
     Indication: ACUTE LYMPHOCYTIC LEUKAEMIA
     Dosage: 75 MG/M2, QD (DAY 38-39-40-41-45-46-47-48)
     Route: 042
  7. FORTECORTIN [Suspect]
     Active Substance: DEXAMETHASONE
     Dosage: 11 MG, QD
     Route: 048
     Dates: start: 20170828, end: 20170917
  8. FORTECORTIN [Suspect]
     Active Substance: DEXAMETHASONE
     Dosage: 6 MG, QD
     Route: 048
     Dates: start: 20170918, end: 20170923
  9. MESNA. [Suspect]
     Active Substance: MESNA
     Indication: ACUTE LYMPHOCYTIC LEUKAEMIA
     Dosage: UNK
     Route: 042
     Dates: start: 20170523
  10. NOPIL [Concomitant]
     Active Substance: SULFAMETHOXAZOLE\TRIMETHOPRIM
     Indication: PRODUCT USED FOR UNKNOWN INDICATION
     Route: 065
     Dates: start: 201703
  11. NOPIL [Concomitant]
     Active Substance: SULFAMETHOXAZOLE\TRIMETHOPRIM
     Dosage: 160 MG, QW2 (2 X/WEEK )
     Route: 048
     Dates: start: 20170927
  12. MEROPENEM. [Concomitant]
     Active Substance: MEROPENEM
     Indication: PRODUCT USED FOR UNKNOWN INDICATION
     Dosage: 1200 MG, TID
     Route: 042
     Dates: start: 20171001, end: 20171006
  13. NALOXON [Concomitant]
     Active Substance: NALOXONE HYDROCHLORIDE
     Indication: PRODUCT USED FOR UNKNOWN INDICATION
     Route: 042
     Dates: start: 20170930, end: 20171007
  14. TAVEGYL [Concomitant]
     Active Substance: CLEMASTINE FUMARATE
     Indication: PRODUCT USED FOR UNKNOWN INDICATION
     Route: 065
     Dates: start: 201703
  15. CYTARABINE. [Interacting]
     Active Substance: CYTARABINE
     Dosage: 80 MG, UNK
     Route: 042
     Dates: start: 20171012, end: 20171015
  16. ENDOXAN [Suspect]
     Active Substance: CYCLOPHOSPHAMIDE
     Dosage: 1070 MG, UNK
     Route: 042
     Dates: start: 20171010, end: 20171010
  17. VINCRISTIN [Suspect]
     Active Substance: VINCRISTINE
     Dosage: 1.6 MG, UNK
     Route: 042
     Dates: start: 20170918
  18. PEG/L-ASPARAGINASE [Suspect]
     Active Substance: PEGASPARGASE
     Dosage: 2500 IU/M2, QD (DAY 8)
     Route: 042
  19. FUROSEMID [Concomitant]
     Active Substance: FUROSEMIDE
     Indication: PRODUCT USED FOR UNKNOWN INDICATION
     Route: 065
     Dates: start: 201703
  20. FUROSEMID [Concomitant]
     Active Substance: FUROSEMIDE
     Dosage: 15 MG, ONCE/SINGLE
     Route: 042
     Dates: start: 20171011, end: 20171011
  21. TAVEGYL [Concomitant]
     Active Substance: CLEMASTINE FUMARATE
     Dosage: 1 MG, QD
     Route: 042
     Dates: start: 20171002, end: 20171003
  22. UROMITEXAN [Concomitant]
     Active Substance: MESNA
     Dosage: 430 MG, UNK
     Route: 042
     Dates: start: 20171010, end: 20171010
  23. METHOTREXATE (METHOTREXATE SODIUM) [Interacting]
     Active Substance: METHOTREXATE SODIUM
     Dosage: 5350 MG, (535+4815 MG IV SINGLE DOSE)
     Route: 037
     Dates: start: 20170802, end: 20170803
  24. FORTECORTIN [Suspect]
     Active Substance: DEXAMETHASONE
     Indication: ACUTE LYMPHOCYTIC LEUKAEMIA
     Dosage: 10 MG/M2, QD (DAY 1 TO 21)
     Route: 048
  25. TRAMADOL. [Concomitant]
     Active Substance: TRAMADOL
     Indication: PRODUCT USED FOR UNKNOWN INDICATION
     Route: 048
     Dates: start: 20170930, end: 20170930
  26. NOVALGIN [Concomitant]
     Active Substance: METAMIZOLE SODIUM
     Indication: PRODUCT USED FOR UNKNOWN INDICATION
     Route: 065
     Dates: start: 201703
  27. LANVIS [Suspect]
     Active Substance: THIOGUANINE ANHYDROUS
     Indication: ACUTE LYMPHOCYTIC LEUKAEMIA
     Dosage: 60 MG/M2, QD (DAY 36 TO 49)
     Route: 048
  28. AMPHOTERICIN B. [Suspect]
     Active Substance: AMPHOTERICIN B
     Indication: ACUTE LYMPHOCYTIC LEUKAEMIA
     Route: 065
     Dates: start: 201703
  29. VINCRISTIN [Suspect]
     Active Substance: VINCRISTINE
     Dosage: 1.6 MG, UNK
     Route: 042
     Dates: start: 20170901
  30. ADRIBLASTIN [Suspect]
     Active Substance: DOXORUBICIN HYDROCHLORIDE
     Indication: ACUTE LYMPHOCYTIC LEUKAEMIA
     Dosage: 31 MG, (IV SINGLE DOSE )
     Route: 042
     Dates: start: 20170311
  31. ADRIBLASTIN [Suspect]
     Active Substance: DOXORUBICIN HYDROCHLORIDE
     Dosage: 32 MG, UNK
     Route: 042
     Dates: start: 20170918
  32. ADRIBLASTIN [Suspect]
     Active Substance: DOXORUBICIN HYDROCHLORIDE
     Dosage: 32 MG, UNK
     Route: 042
     Dates: start: 20170925, end: 20170925
  33. PEG/L-ASPARAGINASE [Suspect]
     Active Substance: PEGASPARGASE
     Indication: ACUTE LYMPHOCYTIC LEUKAEMIA
     Dosage: 2700 IU, (IV SINGLE DOSE )
     Route: 042
     Dates: start: 20170315
  34. NOPIL [Concomitant]
     Active Substance: SULFAMETHOXAZOLE\TRIMETHOPRIM
     Dosage: 120 MG, QW2
     Route: 048
     Dates: start: 20170915
  35. FLUCONAZOL [Concomitant]
     Active Substance: FLUCONAZOLE
     Indication: PRODUCT USED FOR UNKNOWN INDICATION
     Dosage: 1 DF, UNK
     Route: 048
     Dates: start: 20170930, end: 20171001
  36. MESNA. [Suspect]
     Active Substance: MESNA
     Dosage: 400 MG/M2, QD (DAY 36)
     Route: 042
  37. ENDOXAN [Suspect]
     Active Substance: CYCLOPHOSPHAMIDE
     Indication: ACUTE LYMPHOCYTIC LEUKAEMIA
     Dosage: 1050 MG, (IV SINGLE DOSE)
     Route: 042
     Dates: start: 20170408, end: 20170523
  38. ADRIBLASTIN [Suspect]
     Active Substance: DOXORUBICIN HYDROCHLORIDE
     Dosage: 30 MG/M2, QD (DAY 8 15 22 29)
     Route: 042
  39. FORTAM [Concomitant]
     Active Substance: CEFTAZIDIME
     Indication: PRODUCT USED FOR UNKNOWN INDICATION
     Route: 065
     Dates: start: 201703
  40. NOVALGIN [Concomitant]
     Active Substance: METAMIZOLE SODIUM
     Dosage: 300 MG, BID
     Route: 065
     Dates: start: 20171010, end: 20171010
  41. METHOTREXATE (METHOTREXATE SODIUM) [Suspect]
     Active Substance: METHOTREXATE SODIUM
     Indication: ACUTE LYMPHOCYTIC LEUKAEMIA
     Dosage: 12 MG, QD
     Route: 037
     Dates: start: 20170306
  42. METHOTREXATE (METHOTREXATE SODIUM) [Interacting]
     Active Substance: METHOTREXATE SODIUM
     Dosage: 5350 MG, (535+4815 MG IV SINGLE DOSE)
     Route: 037
     Dates: start: 20170619, end: 20170620
  43. METHOTREXATE (METHOTREXATE SODIUM) [Interacting]
     Active Substance: METHOTREXATE SODIUM
     Dosage: 5100 MG, (240+4860 MG IV SINGLE DOSE)
     Route: 037
     Dates: start: 20170717, end: 20170718
  44. MESNA. [Suspect]
     Active Substance: MESNA
     Dosage: 430 MG, UNK
     Route: 042
     Dates: start: 20171010, end: 20171010
  45. VINCRISTIN [Suspect]
     Active Substance: VINCRISTINE
     Dosage: 1.5 MG/M2, QD (DAY 8 15 22 29)
     Route: 042
  46. VINCRISTIN [Suspect]
     Active Substance: VINCRISTINE
     Dosage: 1.6 MG, UNK
     Route: 042
     Dates: start: 20170908
  47. ADRIBLASTIN [Suspect]
     Active Substance: DOXORUBICIN HYDROCHLORIDE
     Dosage: 32 MG, UNK
     Route: 042
     Dates: start: 20170901
  48. ONDANSETRON [Concomitant]
     Active Substance: ONDANSETRON
     Dosage: 4 MG, BID (1- 3 X /DAY)
     Route: 042
     Dates: start: 20171010, end: 20171011
  49. FORTAM [Concomitant]
     Active Substance: CEFTAZIDIME
     Dosage: 150 MG/KG, TID
     Route: 042
     Dates: start: 20170927, end: 20171001
  50. MORPHIN [Concomitant]
     Active Substance: MORPHINE
     Indication: PRODUCT USED FOR UNKNOWN INDICATION
     Route: 065
     Dates: start: 201703
  51. MORPHIN [Concomitant]
     Active Substance: MORPHINE
     Route: 042
     Dates: start: 20170930, end: 20171007
  52. METHOTREXATE (METHOTREXATE SODIUM) [Interacting]
     Active Substance: METHOTREXATE SODIUM
     Dosage: 5300 MG, (530+4770 MG IV SINGLE DOSE )
     Route: 037
     Dates: start: 20170703, end: 20170704
  53. ENDOXAN [Suspect]
     Active Substance: CYCLOPHOSPHAMIDE
     Dosage: 1000 MG/M2, QD (DAY 36)
     Route: 042
  54. AMPHOTERICIN B. [Suspect]
     Active Substance: AMPHOTERICIN B
     Dosage: 90 MG, QD
     Route: 042
     Dates: start: 20171002, end: 20171006
  55. VINCRISTIN [Suspect]
     Active Substance: VINCRISTINE
     Indication: ACUTE LYMPHOCYTIC LEUKAEMIA
     Dosage: 1.6 MG, (IV SINGLE DOSE )
     Route: 042
     Dates: start: 20170311
  56. VINCRISTIN [Suspect]
     Active Substance: VINCRISTINE
     Dosage: 1.6 MG, UNK
     Route: 042
     Dates: start: 20170925, end: 20170925
  57. PEG/L-ASPARAGINASE [Suspect]
     Active Substance: PEGASPARGASE
     Dosage: 2600 IU, UNK
     Route: 042
     Dates: start: 20170901, end: 20170901
  58. ONDANSETRON [Concomitant]
     Active Substance: ONDANSETRON
     Indication: PRODUCT USED FOR UNKNOWN INDICATION
     Route: 065
     Dates: start: 201703

REACTIONS (2)
  - Posterior reversible encephalopathy syndrome [Recovered/Resolved]
  - Drug interaction [Recovered/Resolved]

NARRATIVE: CASE EVENT DATE: 20171012
